FAERS Safety Report 13143976 (Version 1)
Quarter: 2017Q1

REPORT INFORMATION
  Report Type: Spontaneous
  Country: FR (occurrence: FR)
  Receive Date: 20170124
  Receipt Date: 20170124
  Transmission Date: 20170428
  Serious: Yes (Life-Threatening)
  Sender: FDA-Public Use
  Company Number: FR-009507513-1701FRA007360

PATIENT
  Age: 50 Year
  Sex: Male

DRUGS (6)
  1. PROPOFOL. [Suspect]
     Active Substance: PROPOFOL
     Indication: GENERAL ANAESTHESIA
     Dosage: UNK
     Route: 042
     Dates: start: 20161213, end: 20161213
  2. SUFENTANIL [Concomitant]
     Active Substance: SUFENTANIL
     Dosage: UNK
     Route: 042
     Dates: start: 20161212, end: 20161213
  3. INEGY [Suspect]
     Active Substance: EZETIMIBE\SIMVASTATIN
     Dosage: LONG TERM TREATMENT, 10MG/40MG, IN THE EVENING
     Route: 048
  4. CEFOXITIN [Concomitant]
     Active Substance: CEFOXITIN SODIUM
     Dosage: UNK
     Route: 042
     Dates: start: 20161213, end: 20161213
  5. KARDEGIC [Concomitant]
     Active Substance: ASPIRIN LYSINE
     Dosage: LONG TERM TREATMENT, 1 SACHET AT LUNCH
     Route: 048
  6. OLMESARTAN MEDOXOMIL. [Concomitant]
     Active Substance: OLMESARTAN MEDOXOMIL
     Dosage: LONG TERM TREATMENT, 20 MG, HS
     Route: 048

REACTIONS (1)
  - Propofol infusion syndrome [Recovering/Resolving]

NARRATIVE: CASE EVENT DATE: 20161213
